FAERS Safety Report 9093080 (Version 1)
Quarter: 2013Q1

REPORT INFORMATION
  Report Type: Report from Study
  Country: US (occurrence: US)
  Receive Date: 20130131
  Receipt Date: 20130131
  Transmission Date: 20140127
  Serious: No
  Sender: FDA-Public Use
  Company Number: US-ABBOTT-12P-163-0998424-00

PATIENT
  Age: 54 Year
  Sex: Female

DRUGS (11)
  1. HUMIRA [Suspect]
     Indication: RHEUMATOID ARTHRITIS
     Route: 058
     Dates: start: 20120918
  2. METHOTREXATE [Concomitant]
     Indication: RHEUMATOID ARTHRITIS
     Dosage: FOUR TABLETS ON TUESDAY AND WEDNESDAY
  3. PREVACID [Concomitant]
     Indication: GASTROOESOPHAGEAL REFLUX DISEASE
     Route: 048
  4. NORTRIPTYLINE [Concomitant]
     Indication: PROPHYLAXIS AGAINST GASTROINTESTINAL ULCER
     Dosage: 1TAB AT HOUR OF SLEEP
  5. REGLAN [Concomitant]
     Indication: PROPHYLAXIS AGAINST GASTROINTESTINAL ULCER
  6. AZELASTINE NASAL SPRAY [Concomitant]
     Indication: PRODUCT USED FOR UNKNOWN INDICATION
     Dosage: 1 SPRAY PER NOSTRIL TWICE DAILY
     Route: 045
  7. NASONEX NASAL SPRAY [Concomitant]
     Indication: PRODUCT USED FOR UNKNOWN INDICATION
     Dosage: 1 SPRAY PER NOSTRIL DAILY
     Route: 045
  8. PROAIR [Concomitant]
     Indication: ASTHMA
  9. MUCINEX [Concomitant]
     Indication: PRODUCT USED FOR UNKNOWN INDICATION
     Dosage: DAILY
  10. PROBIOTIC [Concomitant]
     Indication: PRODUCT USED FOR UNKNOWN INDICATION
  11. HYDROCODONE/APAP [Concomitant]
     Indication: PAIN
     Dosage: 10 MG/325 MG

REACTIONS (4)
  - Fatigue [Unknown]
  - Skin burning sensation [Unknown]
  - Arthralgia [Not Recovered/Not Resolved]
  - Bedridden [Not Recovered/Not Resolved]
